FAERS Safety Report 9734676 (Version 1)
Quarter: 2013Q4

REPORT INFORMATION
  Report Type: Spontaneous
  Country: US (occurrence: US)
  Receive Date: 20131206
  Receipt Date: 20131206
  Transmission Date: 20140711
  Serious: Yes (Hospitalization, Other)
  Sender: FDA-Public Use
  Company Number: US-JNJFOC-20131202367

PATIENT
  Age: 2 Year
  Sex: Male
  Weight: 12 kg

DRUGS (2)
  1. BENADRYL TOPICAL UNSPECIFIED [Suspect]
     Indication: RASH
     Dosage: LIBERALLY ON BACK
     Route: 061
     Dates: start: 20131202, end: 20131202
  2. ROCEPHIN IM [Concomitant]
     Indication: LOCALISED INFECTION
     Route: 030
     Dates: start: 20131102

REACTIONS (5)
  - Depressed level of consciousness [Not Recovered/Not Resolved]
  - Abnormal behaviour [Not Recovered/Not Resolved]
  - Miosis [Not Recovered/Not Resolved]
  - Circumstance or information capable of leading to medication error [Unknown]
  - Product label issue [Unknown]
